FAERS Safety Report 6678857-3 (Version None)
Quarter: 2010Q2

REPORT INFORMATION
  Report Type: 
  Country: None (occurrence: None)
  Receive Date: 20100406
  Receipt Date: 20090331
  Transmission Date: 20101027
  Serious: Yes (Life-Threatening)
  Sender: FDA-Public Use
  Company Number: 2009BH005307

PATIENT

DRUGS (2)
  1. ROBINUL [Suspect]
     Indication: DRUG USE FOR UNKNOWN INDICATION
  2. NEOSTIGMINE METHYLSULFATE [Suspect]
     Indication: DRUG USE FOR UNKNOWN INDICATION

REACTIONS (1)
  - CARDIO-RESPIRATORY ARREST [None]
